FAERS Safety Report 9355453 (Version 6)
Quarter: 2014Q1

REPORT INFORMATION
  Report Type: Spontaneous
  Country: US (occurrence: US)
  Receive Date: 20130619
  Receipt Date: 20140211
  Transmission Date: 20141002
  Serious: Yes (Hospitalization, Disabling, Other)
  Sender: FDA-Public Use
  Company Number: US-PFIZER INC-2013179914

PATIENT
  Age: 67 Year
  Sex: Female
  Weight: 107 kg

DRUGS (9)
  1. LYRICA [Suspect]
     Indication: FIBROMYALGIA
     Dosage: 75 MG, 3X/DAY
     Route: 048
     Dates: end: 20130607
  2. CELEXA [Concomitant]
     Indication: ANXIETY
     Dosage: UNK
  3. PRAVASTATIN [Concomitant]
     Indication: BLOOD CHOLESTEROL INCREASED
     Dosage: UNK
  4. METFORMIN [Concomitant]
     Dosage: UNK
  5. CITALOPRAM [Concomitant]
     Dosage: UNK
  6. NOVOLOG [Concomitant]
     Dosage: UNK
  7. LANTUS [Concomitant]
     Dosage: UNK
  8. ASPIRIN [Concomitant]
     Dosage: 81 MG
  9. NIACINAMIDE [Concomitant]
     Dosage: UNK

REACTIONS (8)
  - Tremor [Unknown]
  - Palpitations [Unknown]
  - Vomiting [Unknown]
  - Pain [Unknown]
  - Impaired driving ability [Unknown]
  - Mobility decreased [Unknown]
  - Haemoglobin decreased [Unknown]
  - Haematocrit decreased [Unknown]
